FAERS Safety Report 4939554-5 (Version None)
Quarter: 2006Q1

REPORT INFORMATION
  Report Type: 
  Country: None (occurrence: None)
  Receive Date: 20060306
  Receipt Date: 20060302
  Transmission Date: 20060701
  Serious: Yes (Hospitalization)
  Sender: FDA-Public Use
  Company Number: A001-320-767

PATIENT
  Age: 82 Year
  Sex: Female
  Weight: 55.7 kg

DRUGS (9)
  1. DONEPEZIL HCL [Suspect]
     Indication: VASCULAR DEMENTIA
     Dosage: SEE IMAGE
     Route: 048
     Dates: start: 20040406
  2. DONEPEZIL HCL [Suspect]
     Indication: VASCULAR DEMENTIA
     Dosage: DOUBLEBLIND, 1 IN 1 D, ORAL
     Route: 048
  3. PANADEINE (PANADEINE CO) [Concomitant]
  4. DIGOXIN [Concomitant]
  5. METOPROLOL [Concomitant]
  6. WARFARIN [Concomitant]
  7. PHYTONADIONE [Concomitant]
  8. SLOW-K [Concomitant]
  9. AMIODARONE (AMIODARONE) [Concomitant]

REACTIONS (5)
  - ANAESTHETIC COMPLICATION [None]
  - APPENDICEAL ABSCESS [None]
  - APPENDICITIS PERFORATED [None]
  - ATRIAL FIBRILLATION [None]
  - VENTRICULAR TACHYCARDIA [None]
